FAERS Safety Report 5529994-8 (Version None)
Quarter: 2007Q4

REPORT INFORMATION
  Report Type: 
  Country: None (occurrence: None)
  Receive Date: 20071127
  Receipt Date: 20071121
  Transmission Date: 20080405
  Serious: Yes (Life-Threatening, Hospitalization)
  Sender: FDA-Public Use
  Company Number: CLOF-10695

PATIENT
  Age: 21 Year
  Sex: Female
  Weight: 68.1 kg

DRUGS (49)
  1. CLOFARABINE. MFR: GENZYME [Suspect]
     Indication: ACUTE LYMPHOCYTIC LEUKAEMIA
     Dosage: 40 MG/M2 QD X 3 IV
     Route: 042
     Dates: start: 20070927, end: 20070929
  2. CYCLOPHOSPHAMIDE [Suspect]
     Indication: ACUTE LYMPHOCYTIC LEUKAEMIA
     Dosage: 300 MG/M2 ONCE IV
     Route: 042
     Dates: start: 20070926, end: 20070926
  3. CYCLOPHOSPHAMIDE [Suspect]
     Indication: ACUTE LYMPHOCYTIC LEUKAEMIA
     Dosage: 300 MG/M2 BID IV
     Route: 042
     Dates: start: 20070927, end: 20070929
  4. ZOFRAN. MFR: GLAXO LABORATORIES LIMITED [Concomitant]
  5. ALLOPURINOL [Concomitant]
  6. CEFEPIME [Concomitant]
  7. HALOPERIDOL [Concomitant]
  8. HYDRALAZINE [Concomitant]
  9. HYDROMORPHONE HCL [Concomitant]
  10. INSULIN [Concomitant]
  11. ITRACONAZOLE [Concomitant]
  12. ATIVAN. MFR: WYETH LABORATORIES, INCORPORATED [Concomitant]
  13. MEDROXYPROGESTERONE [Concomitant]
  14. METHYLPREDNISOLONE [Concomitant]
  15. METOPROLOL [Concomitant]
  16. PANTOPRAZOLE SODIUM [Concomitant]
  17. SEVELAMER [Concomitant]
  18. TEMAZEPAM [Concomitant]
  19. VALACYCLOVIR HCL [Concomitant]
  20. HYDROXYZINE [Concomitant]
  21. LEVAQUIN. MFR: ORTHO PHARMACEUTICAL CORPORATION [Concomitant]
  22. NORINYL. MFR: SYNTEX LABORATORIES, INCORPORATED [Concomitant]
  23. ANTIPROTOZOAL [Concomitant]
  24. VALTREX. MFR: WELLCOME [Concomitant]
  25. MEROPENEM [Concomitant]
  26. NOREPINEPHRINE [Concomitant]
  27. VASOPRESSIN [Concomitant]
  28. DIPHENHYDRAMINE HCL [Concomitant]
  29. HYDROCORTISONE [Concomitant]
  30. AMIKACIN [Concomitant]
  31. MAGNESIUM SULFATE [Concomitant]
  32. POTASSIUM CHLORIDE [Concomitant]
  33. MIDAZOLAM HCL [Concomitant]
  34. FENTANYL CITRATE [Concomitant]
  35. PANTOPRAZOLE SODIUM [Concomitant]
  36. VORICONAZOLE [Concomitant]
  37. LEVALBUTEROL HCL [Concomitant]
  38. DOPAMINE HCL [Concomitant]
  39. VANCOMYCIN [Concomitant]
  40. PRESSIN. MFR: ALPHAPHARM [Concomitant]
  41. LINEZOLID [Concomitant]
  42. ACYCLOVIR [Concomitant]
  43. SODIUM BICARBONATE [Concomitant]
  44. AMOPHOTERICIN B [Concomitant]
  45. VALOCYCLOVIR [Concomitant]
  46. LEVOFLOXICIN [Concomitant]
  47. FLUCONAZOLE [Concomitant]
  48. ONDANSTERON [Concomitant]
  49. SPECIALITY VITAMIN PRODUCTS [Concomitant]

REACTIONS (10)
  - BRADYCARDIA [None]
  - CARDIO-RESPIRATORY ARREST [None]
  - DIABETIC KETOACIDOSIS [None]
  - GLUCOSE TOLERANCE IMPAIRED [None]
  - HYPERBILIRUBINAEMIA [None]
  - HYPOTENSION [None]
  - NEUTROPENIC INFECTION [None]
  - PANCREATITIS [None]
  - SINUSITIS [None]
  - TACHYCARDIA [None]
